FAERS Safety Report 6940197-2 (Version None)
Quarter: 2010Q3

REPORT INFORMATION
  Report Type: 
  Country: None (occurrence: None)
  Receive Date: 20100825
  Receipt Date: 20100816
  Transmission Date: 20110219
  Serious: No
  Sender: FDA-Public Use
  Company Number: US-TEVA-245777USA

PATIENT
  Age: 45 Year
  Sex: Male
  Weight: 90.8 kg

DRUGS (4)
  1. COPAXONE [Suspect]
     Indication: MULTIPLE SCLEROSIS
     Route: 058
     Dates: start: 20100701
  2. AMPYRA [Suspect]
     Indication: MULTIPLE SCLEROSIS
     Dates: start: 20100701
  3. ROSUVASTATIN [Concomitant]
  4. OLMESARTAN MEDOXOMIL [Concomitant]

REACTIONS (1)
  - URTICARIA [None]
